FAERS Safety Report 12501280 (Version 3)
Quarter: 2016Q3

REPORT INFORMATION
  Report Type: Spontaneous
  Country: US (occurrence: US)
  Receive Date: 20160627
  Receipt Date: 20160901
  Transmission Date: 20161109
  Serious: No
  Sender: FDA-Public Use
  Company Number: US-PFIZER INC-2016291998

PATIENT
  Age: 52 Year
  Sex: Male
  Weight: 113.4 kg

DRUGS (6)
  1. XANAX [Concomitant]
     Active Substance: ALPRAZOLAM
     Indication: ANXIETY
     Dosage: 2 MG, ONE TABLET BY MOUTH ONCE DAILY AS NEEDED
     Route: 048
  2. LYRICA [Suspect]
     Active Substance: PREGABALIN
     Indication: HYPOAESTHESIA
     Dosage: 75 MG, 3X/DAY
     Route: 048
     Dates: start: 2013
  3. MORPHINE [Concomitant]
     Active Substance: MORPHINE
     Indication: BACK DISORDER
     Dosage: 30 MG, 2X/DAY, EXTENDED RELEASE
     Route: 048
  4. CYMBALTA [Concomitant]
     Active Substance: DULOXETINE HYDROCHLORIDE
     Indication: MENTAL DISORDER
     Dosage: 100 MG, 1X/DAY
     Route: 048
  5. LYRICA [Suspect]
     Active Substance: PREGABALIN
     Indication: BURNING SENSATION
  6. OXYCODONE [Concomitant]
     Active Substance: OXYCODONE
     Indication: BACK DISORDER
     Dosage: 10 MG TWO TABLETS BY MOUTH TWICE DAILY, AS NEEDED
     Route: 048

REACTIONS (2)
  - Drug dose omission [Unknown]
  - Paraesthesia [Not Recovered/Not Resolved]
